FAERS Safety Report 4770721-X (Version None)
Quarter: 2005Q3

REPORT INFORMATION
  Report Type: 
  Country: None (occurrence: None)
  Receive Date: 20050914
  Receipt Date: 20050131
  Transmission Date: 20060218
  Serious: Yes (Hospitalization)
  Sender: FDA-Public Use
  Company Number: 2005021741

PATIENT
  Sex: Female

DRUGS (2)
  1. ADRIBLASTINE PFS (DOXORUBICIN HYDROCHLORIDE) [Suspect]
     Indication: BREAST CANCER FEMALE
     Dosage: 60 MG/M*2
  2. CYCLOPHOSPHAMIDE [Suspect]
     Indication: BREAST CANCER FEMALE
     Dosage: 600 MG/M*2

REACTIONS (1)
  - PALMAR-PLANTAR ERYTHRODYSAESTHESIA SYNDROME [None]
